FAERS Safety Report 10253707 (Version 1)
Quarter: 2014Q2

REPORT INFORMATION
  Report Type: Spontaneous
  Country: CN (occurrence: CN)
  Receive Date: 20140623
  Receipt Date: 20140623
  Transmission Date: 20141212
  Serious: Yes (Other)
  Sender: FDA-Public Use
  Company Number: CN-BAXTER-2014BAX031005

PATIENT
  Age: 70 Year
  Sex: Female
  Weight: 54 kg

DRUGS (5)
  1. 5% GLUCOSE  INJECTION [Suspect]
     Indication: NUTRITIONAL SUPPLEMENTATION
     Route: 041
     Dates: start: 20130708, end: 20130708
  2. 5% GLUCOSE  INJECTION [Suspect]
     Indication: OFF LABEL USE
  3. MEDIUM AND LONG CHAIN FAT EMULSION INJECTION (C8-24) 20% [Suspect]
     Indication: NUTRITIONAL SUPPLEMENTATION
     Route: 041
     Dates: start: 20130708, end: 20130708
  4. MEDIUM AND LONG CHAIN FAT EMULSION INJECTION (C8-24) 20% [Suspect]
     Indication: OFF LABEL USE
  5. VITAMIN C [Suspect]
     Indication: NUTRITIONAL SUPPLEMENTATION
     Route: 041
     Dates: start: 20130708, end: 20130708

REACTIONS (4)
  - Chest discomfort [Recovering/Resolving]
  - Dyspnoea [Recovering/Resolving]
  - Cyanosis [Recovered/Resolved]
  - Chills [Recovered/Resolved]
